FAERS Safety Report 9128883 (Version 1)
Quarter: 2013Q1

REPORT INFORMATION
  Report Type: Spontaneous
  Country: JP (occurrence: JP)
  Receive Date: 20130125
  Receipt Date: 20130125
  Transmission Date: 20140127
  Serious: Yes (Other)
  Sender: FDA-Public Use
  Company Number: JP-ASTRAZENECA-2013SE04643

PATIENT
  Age: 77 Year
  Sex: Female

DRUGS (4)
  1. SEROQUEL [Suspect]
     Indication: PORIOMANIA
     Route: 048
  2. REMERON [Concomitant]
     Indication: DEMENTIA
  3. REMERON [Concomitant]
     Indication: RESTLESSNESS
  4. REMERON [Concomitant]
     Indication: FEELING ABNORMAL

REACTIONS (2)
  - Drug eruption [Unknown]
  - Off label use [Unknown]
